FAERS Safety Report 4506396-4 (Version None)
Quarter: 2004Q4

REPORT INFORMATION
  Report Type: 
  Country: None (occurrence: None)
  Receive Date: 20041025
  Receipt Date: 20031230
  Transmission Date: 20050328
  Serious: Yes (Life-Threatening)
  Sender: FDA-Public Use
  Company Number: US-JNJFOC-20040100158

PATIENT
  Age: 19 Year
  Sex: Male

DRUGS (8)
  1. REMICADE [Suspect]
     Indication: CROHN'S DISEASE
     Dosage: INTRAVENOUS
     Route: 042
  2. COMPCORTOZONE (ALL OTHER THERAUEPTIC PRODUCTS) [Concomitant]
  3. MORPHINE SULFATE [Concomitant]
  4. ZOFRAN [Concomitant]
  5. BENADRYL [Concomitant]
  6. MEDICADE EXTRA DOSE (ALL OTHER THERAPEUTIC PRODUCTS) [Concomitant]
  7. DIOXINS (ALL OTHER THERAPEUTIC PRODUCTS) [Concomitant]
  8. METHOTREXATE [Concomitant]

REACTIONS (1)
  - NO ADVERSE DRUG EFFECT [None]
